FAERS Safety Report 7607730-9 (Version None)
Quarter: 2011Q3

REPORT INFORMATION
  Report Type: 
  Country: None (occurrence: None)
  Receive Date: 20110713
  Receipt Date: 20110530
  Transmission Date: 20111222
  Serious: Yes (Hospitalization, Other)
  Sender: FDA-Public Use
  Company Number: PHHY2010JP70540

PATIENT
  Sex: Female
  Weight: 37 kg

DRUGS (8)
  1. VALSARTAN [Suspect]
     Dosage: 80 MG, QD
     Route: 048
     Dates: start: 20090217, end: 20090302
  2. SENNOSIDE [Concomitant]
     Dosage: 1 DF, UNK
     Route: 048
     Dates: start: 20090130, end: 20090611
  3. SYAKUYAKUKANZOTO [Concomitant]
     Dosage: 7.5 G, UNK
     Route: 048
     Dates: start: 20090130, end: 20090430
  4. VALSARTAN [Suspect]
     Dosage: 80 MG, QD
     Route: 048
     Dates: start: 20100531, end: 20100611
  5. EMPYNASE P [Concomitant]
     Dosage: 3 DF, UNK
     Route: 048
     Dates: start: 20090130, end: 20090420
  6. LEVOTHYROXINE SODIUM [Concomitant]
     Dosage: 100 UG, UNK
     Route: 048
     Dates: start: 20090130, end: 20090611
  7. YOUCOBAL [Concomitant]
     Dosage: 1500 UG, UNK
     Route: 048
     Dates: start: 20090206, end: 20090420
  8. VALSARTAN [Suspect]
     Dosage: 160 MG, QD
     Route: 048
     Dates: start: 20090303, end: 20100530

REACTIONS (5)
  - THORACIC VERTEBRAL FRACTURE [None]
  - BACK PAIN [None]
  - BLOOD PRESSURE DIASTOLIC DECREASED [None]
  - FALL [None]
  - HYPOKALAEMIA [None]
